FAERS Safety Report 5416345-2 (Version None)
Quarter: 2007Q3

REPORT INFORMATION
  Report Type: 
  Country: None (occurrence: None)
  Receive Date: 20070816
  Receipt Date: 20070809
  Transmission Date: 20080115
  Serious: Yes (Other)
  Sender: FDA-Public Use
  Company Number: PHEH2007US10769

PATIENT
  Age: 60 Year
  Sex: Male

DRUGS (6)
  1. ZOMETA [Suspect]
     Indication: MULTIPLE MYELOMA
     Dosage: 4 MG Q4W
     Route: 042
     Dates: start: 20050322
  2. THALIDOMIDE [Concomitant]
     Indication: MULTIPLE MYELOMA
     Dosage: 300 MG, QHS
  3. DECADRON [Concomitant]
     Indication: MULTIPLE MYELOMA
     Dosage: 40 MG X 4 DAYS MONTHLY
  4. PRILOSEC [Concomitant]
     Dosage: 20 MG, QD
     Route: 048
  5. COUMADIN [Concomitant]
     Dosage: 2 TO 5 MG AS DIRECTED
  6. MIRALAX [Concomitant]
     Dosage: 17 G, UNK

REACTIONS (7)
  - DENTAL TREATMENT [None]
  - ERYTHEMA [None]
  - IMPAIRED HEALING [None]
  - OSTEONECROSIS [None]
  - PAIN [None]
  - SWELLING [None]
  - TOOTH EXTRACTION [None]
